FAERS Safety Report 10074655 (Version 1)
Quarter: 2014Q2

REPORT INFORMATION
  Report Type: Spontaneous
  Country: US (occurrence: US)
  Receive Date: 20140414
  Receipt Date: 20140414
  Transmission Date: 20141212
  Serious: No
  Sender: FDA-Public Use
  Company Number: US-009507513-1404USA005049

PATIENT
  Age: 40 Year
  Sex: Female
  Weight: 180 kg

DRUGS (1)
  1. NUVARING [Suspect]
     Dosage: UNK
     Route: 067
     Dates: start: 2011

REACTIONS (1)
  - Inappropriate schedule of drug administration [Unknown]
